FAERS Safety Report 25660224 (Version 2)
Quarter: 2025Q3

REPORT INFORMATION
  Report Type: Spontaneous
  Country: US (occurrence: US)
  Receive Date: 20250808
  Receipt Date: 20250812
  Transmission Date: 20251021
  Serious: Yes (Other)
  Sender: JOHNSON AND JOHNSON
  Company Number: US-JNJFOC-20250739136

PATIENT

DRUGS (2)
  1. CILTACABTAGENE AUTOLEUCEL [Suspect]
     Active Substance: CILTACABTAGENE AUTOLEUCEL
     Indication: Plasma cell myeloma
     Route: 065
  2. IDECABTAGENE VICLEUCEL [Suspect]
     Active Substance: IDECABTAGENE VICLEUCEL
     Indication: Plasma cell myeloma
     Route: 065

REACTIONS (14)
  - Guillain-Barre syndrome [Unknown]
  - Cytokine release syndrome [Unknown]
  - Neuropathy peripheral [Unknown]
  - Immune effector cell-associated neurotoxicity syndrome [Unknown]
  - Cytomegalovirus viraemia [Unknown]
  - Parkinsonism [Unknown]
  - Roseolovirus test positive [Unknown]
  - Human herpesvirus 6 viraemia [Unknown]
  - Facial paralysis [Unknown]
  - Trigeminal palsy [Unknown]
  - VIth nerve paralysis [Unknown]
  - IIIrd nerve paralysis [Unknown]
  - Herpes simplex test positive [Unknown]
  - Upper respiratory tract infection [Unknown]
